FAERS Safety Report 20575047 (Version 3)
Quarter: 2022Q1

REPORT INFORMATION
  Report Type: Spontaneous
  Country: US (occurrence: US)
  Receive Date: 20220310
  Receipt Date: 20220314
  Transmission Date: 20220424
  Serious: Yes (Hospitalization)
  Sender: FDA-Public Use
  Company Number: US-SA-SAC20220303001250

PATIENT
  Sex: Female

DRUGS (1)
  1. DUPIXENT [Suspect]
     Active Substance: DUPILUMAB
     Indication: Asthma
     Dosage: 300 MG, QOW
     Route: 058

REACTIONS (7)
  - Road traffic accident [Unknown]
  - Back injury [Unknown]
  - Eczema [Unknown]
  - Swelling [Unknown]
  - Injection site swelling [Unknown]
  - Rash [Unknown]
  - Product use issue [Unknown]
